FAERS Safety Report 14977776 (Version 1)
Quarter: 2018Q2

REPORT INFORMATION
  Report Type: Report from Study
  Country: FR (occurrence: FR)
  Receive Date: 20180606
  Receipt Date: 20180606
  Transmission Date: 20180711
  Serious: Yes (Death, Hospitalization)
  Sender: FDA-Public Use
  Company Number: FR-ACCORD-067795

PATIENT
  Age: 84 Year
  Sex: Male
  Weight: 65 kg

DRUGS (3)
  1. ELVORINE [Suspect]
     Active Substance: LEUCOVORIN CALCIUM
     Indication: COLORECTAL CANCER METASTATIC
     Dosage: LAST ADMINISTRATION  PRIOR TO SAE ON 18-SEP-2017 (15TH CYCLE)
     Route: 042
     Dates: start: 20170227
  2. FLUOROURACIL. [Suspect]
     Active Substance: FLUOROURACIL
     Indication: COLORECTAL CANCER METASTATIC
     Dosage: LAST ADMINISTRATION  PRIOR TO SAE ON 18-SEP-2017 (15TH CYCLE)
     Route: 040
     Dates: start: 20170227
  3. AVASTIN [Suspect]
     Active Substance: BEVACIZUMAB
     Indication: COLORECTAL CANCER METASTATIC
     Dosage: LAST ADMINISTRATION  PRIOR TO SAE ON 18-SEP-2017 (14TH CYCLE)
     Route: 041
     Dates: start: 20170310

REACTIONS (2)
  - General physical health deterioration [Fatal]
  - Lung infection [Recovered/Resolved]

NARRATIVE: CASE EVENT DATE: 20171016
